FAERS Safety Report 8183981-2 (Version None)
Quarter: 2012Q1

REPORT INFORMATION
  Report Type: 
  Country: None (occurrence: None)
  Receive Date: 20120305
  Receipt Date: 20120130
  Transmission Date: 20120608
  Serious: Yes (Other)
  Sender: FDA-Public Use
  Company Number: FR-PFIZER INC-K201000139

PATIENT
  Age: 34 Year
  Sex: Male

DRUGS (5)
  1. OMEPRAZOLE [Suspect]
     Dosage: UNK
  2. FOLIC ACID [Concomitant]
  3. ATORVASTATIN [Suspect]
     Dosage: UNK
     Route: 048
  4. RAMIPRIL [Suspect]
     Dosage: UNK
     Route: 048
  5. NEORAL [Suspect]
     Indication: NEPHRITIC SYNDROME
     Dosage: UNK
     Route: 048
     Dates: start: 20080601, end: 20081201

REACTIONS (1)
  - HYPOSPERMIA [None]
